FAERS Safety Report 25919108 (Version 1)
Quarter: 2025Q4

REPORT INFORMATION
  Report Type: Spontaneous
  Country: US (occurrence: None)
  Receive Date: 20251013
  Receipt Date: 20251013
  Transmission Date: 20260118
  Serious: Yes (Death)
  Sender: FDA-CTU
  Company Number: None

PATIENT
  Age: 30 Year
  Sex: Male

DRUGS (1)
  1. LENALIDOMIDE [Suspect]
     Active Substance: LENALIDOMIDE
     Indication: Burkitt^s lymphoma
     Dosage: 15MG QD ORAL
     Route: 048
     Dates: start: 20250718, end: 20250731

REACTIONS (1)
  - Death [None]

NARRATIVE: CASE EVENT DATE: 20250731
